FAERS Safety Report 20438711 (Version 1)
Quarter: 2022Q1

REPORT INFORMATION
  Report Type: Spontaneous
  Country: US (occurrence: None)
  Receive Date: 20220204
  Receipt Date: 20220204
  Transmission Date: 20220423
  Serious: Yes (Death)
  Sender: FDA-Public Use
  Company Number: None

PATIENT
  Age: 91 Year
  Sex: Female

DRUGS (12)
  1. PROMACTA [Suspect]
     Active Substance: ELTROMBOPAG OLAMINE
     Indication: Immune thrombocytopenia
     Dosage: FREQUENCY : DAILY;?TAKE 1 TABLET BY MOUTH DAILY ON AN EMPTY STOMACH 1 HOUR BEFORE OR 2 HOURS AFTER A
     Route: 048
     Dates: start: 20180130, end: 20211224
  2. ASPIRIN LOW TAB [Concomitant]
  3. ATENOLOL [Concomitant]
     Active Substance: ATENOLOL
  4. ATORVASTATIN [Concomitant]
     Active Substance: ATORVASTATIN
  5. FEROSUL TAB [Concomitant]
  6. FLOVENT HFA [Concomitant]
     Active Substance: FLUTICASONE PROPIONATE
  7. HYDRALAZINE TAB [Concomitant]
  8. LEVOTHYROXIN TAB [Concomitant]
  9. MELATONIN TAB [Concomitant]
  10. MULTIVITAMIN TAB ADULTS [Concomitant]
  11. OMEPRAZOLE [Concomitant]
  12. PAIN + FEVER TAB [Concomitant]

REACTIONS (1)
  - Death [None]

NARRATIVE: CASE EVENT DATE: 20211224
